FAERS Safety Report 14609763 (Version 3)
Quarter: 2018Q2

REPORT INFORMATION
  Report Type: Report from Study
  Country: US (occurrence: US)
  Receive Date: 20180307
  Receipt Date: 20180505
  Transmission Date: 20180711
  Serious: Yes (Other)
  Sender: FDA-Public Use
  Company Number: US-MALLINCKRODT-T201800064

PATIENT
  Age: 53 Year
  Sex: Female

DRUGS (5)
  1. REPOSITORY CORTICOTROPIN INJECTION [Suspect]
     Active Substance: CORTICOTROPIN
     Dosage: 80 UNITS / 1 ML, THREE TIMES A WEEK (MONDAY,WEDNESDAY, SATURDAY)
     Route: 058
     Dates: start: 2018, end: 20180326
  2. REPOSITORY CORTICOTROPIN INJECTION [Suspect]
     Active Substance: CORTICOTROPIN
     Dosage: 80 UNITS / 1 ML, TWO TIMES A WEEK
     Route: 065
     Dates: start: 2018, end: 20180411
  3. REPOSITORY CORTICOTROPIN INJECTION [Suspect]
     Active Substance: CORTICOTROPIN
     Dosage: 80 UNITS / 1 ML
     Route: 058
     Dates: end: 20180423
  4. REPOSITORY CORTICOTROPIN INJECTION [Suspect]
     Active Substance: CORTICOTROPIN
     Indication: RHEUMATOID ARTHRITIS
     Dosage: 80 UNITS / 1 ML, 2 TIMES PER WEEK (TUESDAY AND FRIDAY)
     Route: 058
     Dates: start: 20170703, end: 20180117
  5. XELJANZ [Concomitant]
     Active Substance: TOFACITINIB CITRATE
     Indication: RHEUMATOID ARTHRITIS
     Dosage: UNK
     Route: 065

REACTIONS (27)
  - Adrenal disorder [Unknown]
  - Rheumatoid arthritis [Unknown]
  - Musculoskeletal pain [Recovering/Resolving]
  - Depression [Unknown]
  - Rash [Unknown]
  - Abdominal pain [Recovering/Resolving]
  - Pain [Unknown]
  - Vomiting [Recovering/Resolving]
  - Hyperhidrosis [Unknown]
  - Feeling hot [Unknown]
  - Visual impairment [Recovering/Resolving]
  - Blood cholesterol increased [Unknown]
  - Fluid retention [Unknown]
  - Nasopharyngitis [Unknown]
  - Throat tightness [Unknown]
  - Alopecia [Not Recovered/Not Resolved]
  - Diabetes mellitus [Unknown]
  - Weight increased [Recovering/Resolving]
  - Muscle spasms [Not Recovered/Not Resolved]
  - Malaise [Not Recovered/Not Resolved]
  - Abdominal distension [Unknown]
  - Frustration tolerance decreased [Unknown]
  - Chills [Unknown]
  - Headache [Unknown]
  - Skin ulcer [Not Recovered/Not Resolved]
  - Back pain [Recovering/Resolving]
  - Fatigue [Unknown]

NARRATIVE: CASE EVENT DATE: 20170703
